FAERS Safety Report 19043641 (Version 1)
Quarter: 2021Q1

REPORT INFORMATION
  Report Type: Spontaneous
  Country: DE (occurrence: DE)
  Receive Date: 20210323
  Receipt Date: 20210323
  Transmission Date: 20210420
  Serious: Yes (Life-Threatening, Hospitalization)
  Sender: FDA-Public Use
  Company Number: DE-PFIZER INC-2021287501

PATIENT
  Age: 57 Year
  Sex: Male

DRUGS (9)
  1. RAMIPRIL. [Suspect]
     Active Substance: RAMIPRIL
     Dosage: 5 MG, 1X/DAY (1?0?0?0)
     Route: 048
  2. ALLOPURINOL. [Suspect]
     Active Substance: ALLOPURINOL
     Dosage: 300 MG, 1X/DAY (1?0?0?0)
     Route: 048
  3. DUAKLIR GENUAIR [Concomitant]
     Active Substance: ACLIDINIUM BROMIDE\FORMOTEROL FUMARATE
     Dosage: 1 DF (340|12 UG), 2X/DAY (1?0?1?0)
     Route: 055
  4. VERAPAMIL [Suspect]
     Active Substance: VERAPAMIL HYDROCHLORIDE
     Dosage: 80 MG, 2X/DAY (1?0?0?1)
     Route: 048
  5. SALBUTAMOL [Concomitant]
     Active Substance: ALBUTEROL
     Dosage: 0.1 MG, 3X/DAY (1?1?1?0)
     Route: 055
  6. AMLODIPINE BESILATE [Suspect]
     Active Substance: AMLODIPINE BESYLATE
     Dosage: 5 MG, 1X/DAY (1?0?0?0)
     Route: 048
  7. BISOPROLOL [Suspect]
     Active Substance: BISOPROLOL
     Dosage: 2.5 MG, 1X/DAY (1?0?0?0)
     Route: 048
  8. OMEPRAZOL [Concomitant]
     Active Substance: OMEPRAZOLE
     Dosage: 40 MG, 1X/DAY (1?0?0?0)
     Route: 048
  9. DICLOFENAC [Suspect]
     Active Substance: DICLOFENAC
     Dosage: 75 MG, 2X/DAY (1?0?1?0)
     Route: 048

REACTIONS (6)
  - Blood creatinine increased [Unknown]
  - General physical health deterioration [Unknown]
  - Electrolyte imbalance [Unknown]
  - Condition aggravated [Unknown]
  - Glomerular filtration rate increased [Unknown]
  - Gamma-glutamyltransferase increased [Unknown]
